FAERS Safety Report 5473575-1 (Version None)
Quarter: 2007Q4

REPORT INFORMATION
  Report Type: 
  Country: None (occurrence: None)
  Receive Date: 20071001
  Receipt Date: 20070419
  Transmission Date: 20080405
  Serious: No
  Sender: FDA-Public Use
  Company Number: US-ASTRAZENECA-2007UW07706

PATIENT
  Age: 61 Year
  Sex: Female
  Weight: 63.5 kg

DRUGS (3)
  1. ARIMIDEX [Suspect]
     Route: 048
     Dates: start: 20061101
  2. CALCIUM [Concomitant]
  3. VITAMIN CAP [Concomitant]

REACTIONS (3)
  - ARTHRALGIA [None]
  - JOINT DISLOCATION [None]
  - PAIN IN EXTREMITY [None]
